FAERS Safety Report 8329836-1 (Version None)
Quarter: 2012Q2

REPORT INFORMATION
  Report Type: 
  Country: None (occurrence: None)
  Receive Date: 20120502
  Receipt Date: 20120419
  Transmission Date: 20120825
  Serious: Yes (Hospitalization)
  Sender: FDA-Public Use
  Company Number: JP-ROCHE-1063129

PATIENT
  Sex: Male

DRUGS (27)
  1. ACTEMRA [Suspect]
     Route: 041
     Dates: start: 20090709, end: 20091015
  2. ACTEMRA [Suspect]
     Route: 041
     Dates: start: 20100526, end: 20100526
  3. PREDNISOLONE [Concomitant]
     Indication: CASTLEMAN'S DISEASE
     Route: 048
     Dates: start: 20080630, end: 20080810
  4. PREDNISOLONE [Concomitant]
     Route: 048
     Dates: start: 20081027, end: 20101026
  5. MEROPEN (JAPAN) [Concomitant]
     Indication: CASTLEMAN'S DISEASE
     Route: 041
     Dates: start: 20080618, end: 20080627
  6. VITAMIN B6 [Concomitant]
     Indication: PROPHYLAXIS
     Route: 048
     Dates: start: 20080630, end: 20080811
  7. AMLODIPINE [Concomitant]
     Indication: HYPERTENSION
     Route: 048
  8. DIOVAN [Concomitant]
     Indication: HYPERTENSION
     Route: 048
  9. ACTEMRA [Suspect]
     Route: 041
     Dates: start: 20090212, end: 20090625
  10. ACTEMRA [Suspect]
     Route: 041
     Dates: start: 20091210, end: 20100114
  11. ACTEMRA [Suspect]
     Route: 041
     Dates: start: 20100204, end: 20100513
  12. ALENDRONATE SODIUM [Concomitant]
     Indication: PROPHYLAXIS
     Route: 048
     Dates: start: 20080702
  13. COTRIM [Concomitant]
     Indication: PROPHYLAXIS
     Route: 048
     Dates: start: 20080630
  14. LEVOFLOXACIN [Concomitant]
     Indication: PROPHYLAXIS
     Route: 048
     Dates: start: 20080801
  15. POLARAMINE [Concomitant]
     Indication: PROPHYLAXIS
     Dosage: IMMEDIATELY BEFORE ADMINISTERING OF [AKUTEMURA]
     Route: 048
     Dates: start: 20081020
  16. ACTEMRA [Suspect]
     Route: 041
     Dates: start: 20081202, end: 20081225
  17. ACTEMRA [Suspect]
     Route: 041
     Dates: start: 20100707, end: 20120411
  18. ACTEMRA [Suspect]
     Route: 041
     Dates: start: 20100610, end: 20100610
  19. ACTEMRA [Suspect]
     Route: 041
     Dates: start: 20100623, end: 20100623
  20. RABEPRAZOLE SODIUM [Concomitant]
     Indication: PROPHYLAXIS
     Route: 048
     Dates: start: 20080630
  21. ASPIRIN [Concomitant]
     Indication: PROPHYLAXIS
     Route: 048
  22. ACTEMRA [Suspect]
     Indication: CASTLEMAN'S DISEASE
     Route: 041
     Dates: start: 20081006, end: 20081118
  23. ACTEMRA [Suspect]
     Route: 041
     Dates: start: 20090106, end: 20090204
  24. ACTEMRA [Suspect]
     Route: 041
     Dates: start: 20091029, end: 20091119
  25. PREDNISOLONE [Concomitant]
     Route: 048
     Dates: start: 20080811, end: 20081026
  26. PREDNISOLONE [Concomitant]
     Route: 048
     Dates: start: 20081027
  27. CANDESARTAN CILEXETIL [Concomitant]
     Indication: HYPERTENSION
     Route: 048

REACTIONS (3)
  - INTERSTITIAL LUNG DISEASE [None]
  - RASH [None]
  - ERYTHEMA [None]
